FAERS Safety Report 8765618 (Version 1)
Quarter: 2012Q4

REPORT INFORMATION
  Report Type: 
  Country: US (occurrence: US)
  Receive Date: 20120903
  Receipt Date: 20120903
  Transmission Date: 20130627
  Serious: Yes (Other)
  Sender: FDA-Public Use
  Company Number: PHEH2012US016931

PATIENT
  Sex: Female

DRUGS (2)
  1. VIVELLE DOT [Suspect]
     Dosage: UNK UKN, UNK
  2. PROGESTERONE [Concomitant]
     Dosage: UNK UKN, UNK

REACTIONS (5)
  - Loss of consciousness [Unknown]
  - Heart rate irregular [Unknown]
  - Hot flush [Unknown]
  - Rash [Unknown]
  - Dizziness [Unknown]
